FAERS Safety Report 8443676-4 (Version None)
Quarter: 2012Q2

REPORT INFORMATION
  Report Type: 
  Country: None (occurrence: None)
  Receive Date: 20120606
  Receipt Date: 20120525
  Transmission Date: 20120825
  Serious: Yes (Life-Threatening, Hospitalization, Other)
  Sender: FDA-Public Use
  Company Number: DSA_57479_2012

PATIENT
  Age: 60 Year
  Sex: Female

DRUGS (2)
  1. CIPROFLOXACIN HCL [Suspect]
     Indication: DIARRHOEA
     Dosage: 500 MG 1X/12 HOURS, ORAL
     Route: 048
  2. METRONIDAZOLE [Suspect]
     Indication: PSEUDOMEMBRANOUS COLITIS
     Dosage: 500 MG 1X/8  HOURS, ORAL
     Route: 048

REACTIONS (13)
  - LARGE INTESTINAL ULCER [None]
  - TREATMENT FAILURE [None]
  - COLONIC POLYP [None]
  - NAUSEA [None]
  - VOMITING [None]
  - WEIGHT DECREASED [None]
  - PSEUDOMEMBRANOUS COLITIS [None]
  - COLITIS ISCHAEMIC [None]
  - PERITONITIS [None]
  - HYPOTENSION [None]
  - LARGE INTESTINE PERFORATION [None]
  - GASTROINTESTINAL EROSION [None]
  - DRUG INEFFECTIVE [None]
